FAERS Safety Report 12730699 (Version 1)
Quarter: 2016Q3

REPORT INFORMATION
  Report Type: Spontaneous
  Country: US (occurrence: US)
  Receive Date: 20160910
  Receipt Date: 20160910
  Transmission Date: 20161109
  Serious: No
  Sender: FDA-Public Use
  Company Number: US-ASTRAZENECA-2016SE92241

PATIENT
  Sex: Male
  Weight: 89.8 kg

DRUGS (4)
  1. MILK OF MAGNESIA [Concomitant]
     Active Substance: MAGNESIUM HYDROXIDE
     Indication: CONSTIPATION
     Route: 065
  2. CASODEX [Suspect]
     Active Substance: BICALUTAMIDE
     Indication: PROSTATE CANCER
     Route: 048
     Dates: start: 201412, end: 201608
  3. DEGRALEX [Concomitant]
     Indication: PROSTATE CANCER
     Dosage: MONTHLY
     Route: 058
  4. FLOMAX [Concomitant]
     Active Substance: TAMSULOSIN HYDROCHLORIDE
     Route: 065

REACTIONS (17)
  - Asthenia [Unknown]
  - Arthralgia [Unknown]
  - Myalgia [Unknown]
  - Constipation [Unknown]
  - Urinary incontinence [Unknown]
  - Muscular weakness [Unknown]
  - Increased appetite [Unknown]
  - Bradyphrenia [Unknown]
  - Anal incontinence [Unknown]
  - Headache [Unknown]
  - Mental impairment [Unknown]
  - Memory impairment [Unknown]
  - Metabolic disorder [Unknown]
  - Condition aggravated [Unknown]
  - Cognitive disorder [Unknown]
  - Weight increased [Unknown]
  - Fatigue [Unknown]

NARRATIVE: CASE EVENT DATE: 201412
